FAERS Safety Report 10083234 (Version 1)
Quarter: 2014Q2

REPORT INFORMATION
  Report Type: Spontaneous
  Country: US (occurrence: None)
  Receive Date: 20140415
  Receipt Date: 20140415
  Transmission Date: 20141212
  Serious: No
  Sender: FDA-Public Use
  Company Number: None

PATIENT
  Age: 73 Year
  Sex: Male
  Weight: 136.08 kg

DRUGS (2)
  1. XARELTO [Suspect]
     Indication: ATRIAL FIBRILLATION
     Dosage: 1
     Route: 048
     Dates: start: 20130401, end: 20130413
  2. XARELTO [Suspect]
     Indication: ANTICOAGULANT THERAPY
     Dosage: 1
     Route: 048
     Dates: start: 20130401, end: 20130413

REACTIONS (3)
  - Abdominal pain upper [None]
  - Nausea [None]
  - Diarrhoea [None]
